FAERS Safety Report 5601153-X (Version None)
Quarter: 2008Q1

REPORT INFORMATION
  Report Type: 
  Country: None (occurrence: None)
  Receive Date: 20080124
  Receipt Date: 20080117
  Transmission Date: 20080703
  Serious: Yes (Disabling)
  Sender: FDA-Public Use
  Company Number: SE-JNJFOC-20080104569

PATIENT
  Age: 53 Year
  Sex: Male

DRUGS (3)
  1. REMICADE [Suspect]
     Indication: PROCTITIS ULCERATIVE
     Route: 042
  2. IMUREL [Concomitant]
  3. PREDNISOLONE [Concomitant]

REACTIONS (5)
  - ARTHRALGIA [None]
  - DIARRHOEA HAEMORRHAGIC [None]
  - HYPOAESTHESIA [None]
  - JOINT SWELLING [None]
  - PERONEAL NERVE PALSY [None]
